FAERS Safety Report 8180987-4 (Version None)
Quarter: 2012Q1

REPORT INFORMATION
  Report Type: 
  Country: None (occurrence: None)
  Receive Date: 20120301
  Receipt Date: 20120301
  Transmission Date: 20120608
  Serious: No
  Sender: FDA-Public Use
  Company Number: None

PATIENT
  Sex: Female
  Weight: 55.3388 kg

DRUGS (1)
  1. ISOVUE-370 [Suspect]
     Indication: COMPUTERISED TOMOGRAM
     Dosage: 370 IV
     Route: 042
     Dates: start: 20120220

REACTIONS (4)
  - ERYTHEMA INDURATUM [None]
  - SKIN EXFOLIATION [None]
  - RASH [None]
  - OEDEMA [None]
